FAERS Safety Report 25002777 (Version 1)
Quarter: 2025Q1

REPORT INFORMATION
  Report Type: Spontaneous
  Country: US (occurrence: US)
  Receive Date: 20250224
  Receipt Date: 20250224
  Transmission Date: 20250408
  Serious: Yes (Other)
  Sender: APOTEX
  Company Number: US-APOTEX-2025AP002405

PATIENT
  Age: 69 Year
  Sex: Male

DRUGS (4)
  1. LENALIDOMIDE [Suspect]
     Active Substance: LENALIDOMIDE
     Indication: Chemotherapy
     Route: 065
     Dates: start: 2011
  2. LENALIDOMIDE [Suspect]
     Active Substance: LENALIDOMIDE
     Route: 048
  3. DEXAMETHASONE [Suspect]
     Active Substance: DEXAMETHASONE
     Indication: Chemotherapy
     Route: 065
     Dates: start: 2011
  4. BORTEZOMIB [Concomitant]
     Active Substance: BORTEZOMIB
     Indication: Chemotherapy
     Route: 065
     Dates: start: 2011

REACTIONS (1)
  - Pneumonia cryptococcal [Unknown]

NARRATIVE: CASE EVENT DATE: 20230601
